FAERS Safety Report 5506593-5 (Version None)
Quarter: 2007Q4

REPORT INFORMATION
  Report Type: 
  Country: None (occurrence: None)
  Receive Date: 20071105
  Receipt Date: 20071026
  Transmission Date: 20080405
  Serious: Yes (Hospitalization)
  Sender: FDA-Public Use
  Company Number: PHHO2007JP15383

PATIENT
  Age: 56 Year
  Sex: Male
  Weight: 59 kg

DRUGS (3)
  1. VAA489 OR VAL489 OR AMLO. VS PLACEBO [Suspect]
     Indication: ESSENTIAL HYPERTENSION
     Dosage: PLACEBO
     Route: 048
     Dates: start: 20070629, end: 20070725
  2. VAA489 OR VAL489 OR AMLO. VS PLACEBO [Suspect]
     Dosage: 80MG
     Route: 048
     Dates: start: 20070726, end: 20070905
  3. LIVALO KOWA [Concomitant]
     Dates: start: 20060724

REACTIONS (11)
  - AORTIC ARTERIOSCLEROSIS [None]
  - AORTIC THROMBOSIS [None]
  - DIABETIC KETOACIDOSIS [None]
  - DISEASE PROGRESSION [None]
  - DRY MOUTH [None]
  - GLYCOSYLATED HAEMOGLOBIN INCREASED [None]
  - HYPERGLYCAEMIA [None]
  - HYPOTENSION [None]
  - LATENT AUTOIMMUNE DIABETES IN ADULTS [None]
  - POLLAKIURIA [None]
  - POLYDIPSIA [None]
